FAERS Safety Report 9669286 (Version 1)
Quarter: 2013Q4

REPORT INFORMATION
  Report Type: Spontaneous
  Country: AR (occurrence: None)
  Receive Date: 20131101
  Receipt Date: 20131101
  Transmission Date: 20140711
  Serious: Yes (Death)
  Sender: FDA-Public Use
  Company Number: 2013P1020540

PATIENT
  Sex: 0

DRUGS (2)
  1. ENALAPRIL [Suspect]
  2. DICLOFENAC [Suspect]

REACTIONS (1)
  - Renal failure acute [None]
